FAERS Safety Report 14817084 (Version 1)
Quarter: 2018Q2

REPORT INFORMATION
  Report Type: Spontaneous
  Country: BR (occurrence: BR)
  Receive Date: 20180426
  Receipt Date: 20180426
  Transmission Date: 20180711
  Serious: Yes (Life-Threatening, Other)
  Sender: FDA-Public Use
  Company Number: PHHY2018BR073749

PATIENT
  Age: 27 Year
  Sex: Female
  Weight: 65 kg

DRUGS (3)
  1. RISPERIDONE SANDOZ [Suspect]
     Active Substance: RISPERIDONE
     Dosage: 1 DF, EVERY NIGHT
     Route: 065
  2. RISPERIDONE SANDOZ [Suspect]
     Active Substance: RISPERIDONE
     Indication: SCHIZOPHRENIA
     Dosage: 1 DF, EVERY NIGHT
     Route: 065
     Dates: start: 20180416
  3. RISPERIDONE SANDOZ [Suspect]
     Active Substance: RISPERIDONE
     Dosage: 5 DF, ONCE/SINGLE
     Route: 065
     Dates: start: 20180423

REACTIONS (6)
  - Suicide attempt [Unknown]
  - Tremor [Unknown]
  - Overdose [Unknown]
  - Swelling [Unknown]
  - Chest pain [Unknown]
  - Somnolence [Unknown]

NARRATIVE: CASE EVENT DATE: 20180423
